FAERS Safety Report 24449403 (Version 2)
Quarter: 2024Q4

REPORT INFORMATION
  Report Type: Spontaneous
  Country: US (occurrence: US)
  Receive Date: 20241017
  Receipt Date: 20241101
  Transmission Date: 20250114
  Serious: Yes (Hospitalization, Other)
  Sender: TEVA
  Company Number: US-TEVA-VS-3254186

PATIENT
  Age: 66 Year
  Sex: Male

DRUGS (1)
  1. PROPAFENONE [Suspect]
     Active Substance: PROPAFENONE
     Indication: Atrial fibrillation
     Dosage: THE PATIENT SELF-MEDICATED TREATMENT WITH PROPAFENONE PILLS WITH TOTAL DOSE OF 1800MG IN THE 24H.
     Route: 065

REACTIONS (10)
  - Toxicity to various agents [Recovering/Resolving]
  - Intentional overdose [Unknown]
  - Hypotension [Recovering/Resolving]
  - Gait disturbance [Recovering/Resolving]
  - Sinus bradycardia [Recovering/Resolving]
  - Self-medication [Unknown]
  - Dizziness [Recovering/Resolving]
  - Atrioventricular block first degree [Recovering/Resolving]
  - Drug ineffective [Unknown]
  - Electrocardiogram QRS complex prolonged [Recovering/Resolving]
